FAERS Safety Report 16930766 (Version 1)
Quarter: 2019Q4

REPORT INFORMATION
  Report Type: Spontaneous
  Country: GB (occurrence: GB)
  Receive Date: 20191017
  Receipt Date: 20191017
  Transmission Date: 20200122
  Serious: Yes (Death, Life-Threatening, Disabling)
  Sender: FDA-Public Use
  Company Number: GB-MYLANLABS-2019M1097798

PATIENT
  Age: 70 Year
  Sex: Female

DRUGS (7)
  1. AMIODARONE [Suspect]
     Active Substance: AMIODARONE
     Indication: ARRHYTHMIA
     Dosage: UNK
     Route: 065
  2. DEXAMETHASONE. [Concomitant]
     Active Substance: DEXAMETHASONE
     Dosage: 2 MILLIGRAM
     Route: 065
     Dates: start: 20110428, end: 201402
  3. REVLIMID [Suspect]
     Active Substance: LENALIDOMIDE
     Indication: PLASMA CELL MYELOMA
     Dosage: 525 MILLIGRAM, 28D CYCLE (25 MILLIGRAM)
     Route: 048
     Dates: start: 20110428
  4. DEXAMETHASONE. [Concomitant]
     Active Substance: DEXAMETHASONE
     Indication: PLASMA CELL MYELOMA
     Dosage: UNK
     Route: 065
     Dates: start: 200801, end: 200810
  5. REVLIMID [Suspect]
     Active Substance: LENALIDOMIDE
     Dosage: 105 MILLIGRAM, 28D CYCLE (5 MILLIGRAM)
     Route: 048
     Dates: start: 201312, end: 201402
  6. REVLIMID [Suspect]
     Active Substance: LENALIDOMIDE
     Dosage: 315 MILLIGRAM, 28D CYCLE (5 MILLIGRAM)
     Route: 048
  7. REVLIMID [Suspect]
     Active Substance: LENALIDOMIDE
     Dosage: 210 MILLIGRAM, 28D CYCLE (5 MILLIGRAM)
     Route: 048

REACTIONS (2)
  - Oesophageal squamous cell carcinoma [Fatal]
  - Fatigue [Not Recovered/Not Resolved]

NARRATIVE: CASE EVENT DATE: 20120731
